FAERS Safety Report 8062116-0 (Version None)
Quarter: 2012Q1

REPORT INFORMATION
  Report Type: 
  Country: None (occurrence: None)
  Receive Date: 20120123
  Receipt Date: 20120110
  Transmission Date: 20120608
  Serious: Yes (Hospitalization, Other)
  Sender: FDA-Public Use
  Company Number: US-ELI_LILLY_AND_COMPANY-US201011007342

PATIENT
  Sex: Male
  Weight: 79.365 kg

DRUGS (17)
  1. PROCRIT [Concomitant]
     Dosage: UNK
  2. CLONAZEPAM [Concomitant]
     Dosage: .5 MG, QD
  3. FORTEO [Suspect]
     Dosage: 20 UG, QD
  4. NAMENDA [Concomitant]
     Dosage: 10 MG, BID
  5. GALANTAMINE HYDROBROMIDE [Concomitant]
     Dosage: 12 MG, BID
  6. OMEPRAZOLE [Concomitant]
     Dosage: 20 MG, UNKNOWN
  7. OXYBUTYNIN [Concomitant]
     Dosage: 10 MG, UNKNOWN
  8. GABAPENTIN [Concomitant]
     Dosage: 30 MG, BID
  9. FORTEO [Suspect]
     Indication: OSTEOPOROSIS
     Dosage: 20 UG, QD
     Route: 065
     Dates: start: 20101122
  10. FORTEO [Suspect]
     Dosage: 20 UG, QD
  11. CALCIUM [Concomitant]
     Dosage: 600 MG, UNK
  12. ASPIRIN [Concomitant]
  13. FORTEO [Suspect]
     Dosage: 20 UG, QD
  14. VITAMIN TAB [Concomitant]
  15. MELOXICAM [Concomitant]
     Dosage: 12 ML, UNKNOWN
  16. FINASTERIDE [Concomitant]
     Dosage: 5 MG, UNKNOWN
  17. VITAMIN D [Concomitant]
     Dosage: 50000 U, MONTHLY (1/M)

REACTIONS (14)
  - PAIN IN EXTREMITY [None]
  - CONSTIPATION [None]
  - SICK SINUS SYNDROME [None]
  - HYPOTENSION [None]
  - JOINT SWELLING [None]
  - ASTHENIA [None]
  - CARDIOVASCULAR DISORDER [None]
  - RESTLESS LEGS SYNDROME [None]
  - PAIN [None]
  - BLISTER [None]
  - DISCOMFORT [None]
  - ABDOMINAL DISCOMFORT [None]
  - OEDEMA PERIPHERAL [None]
  - ARTHRALGIA [None]
